FAERS Safety Report 8962467 (Version 1)
Quarter: 2012Q4

REPORT INFORMATION
  Report Type: Spontaneous
  Country: US (occurrence: None)
  Receive Date: 20121205
  Receipt Date: 20121205
  Transmission Date: 20130627
  Serious: Yes (Death, Hospitalization)
  Sender: FDA-Public Use
  Company Number: DKLU1086662

PATIENT
  Age: 50 Year
  Sex: Male

DRUGS (2)
  1. MUSTARGEN [Suspect]
  2. PREDNISONE (PREDNISONE) [Suspect]

REACTIONS (2)
  - Clostridium difficile colitis [None]
  - General physical health deterioration [None]
